FAERS Safety Report 8340332-8 (Version None)
Quarter: 2012Q2

REPORT INFORMATION
  Report Type: 
  Country: None (occurrence: None)
  Receive Date: 20120507
  Receipt Date: 20120507
  Transmission Date: 20120825
  Serious: Yes (Hospitalization)
  Sender: FDA-Public Use
  Company Number: None

PATIENT
  Sex: Female
  Weight: 64.1 kg

DRUGS (1)
  1. MULTIHANCE [Suspect]
     Dosage: |DOSAGETEXT: 10 ML|

REACTIONS (5)
  - NASAL CONGESTION [None]
  - OROPHARYNGEAL PAIN [None]
  - EYE PRURITUS [None]
  - CONTRAST MEDIA REACTION [None]
  - SNEEZING [None]
